FAERS Safety Report 14474609 (Version 4)
Quarter: 2022Q1

REPORT INFORMATION
  Report Type: Report from Study
  Country: JP (occurrence: JP)
  Receive Date: 20180201
  Receipt Date: 20220309
  Transmission Date: 20220423
  Serious: Yes (Other)
  Sender: FDA-Public Use
  Company Number: JP-OTSUKA-2016_009691AA

PATIENT
  Age: 39 Year
  Sex: Female
  Weight: 52.6 kg

DRUGS (4)
  1. TOLVAPTAN [Suspect]
     Active Substance: TOLVAPTAN
     Indication: Congenital cystic kidney disease
     Dosage: 90 MG, DAILY DOSE (DIVIDED 2 DOSES)
     Route: 048
     Dates: start: 20151214, end: 20160426
  2. TOLVAPTAN [Suspect]
     Active Substance: TOLVAPTAN
     Dosage: 60 MG, DAILY DOSE (DIVIDED 2 DOSES)
     Route: 048
     Dates: start: 20151124, end: 20151213
  3. DUPHASTON [Suspect]
     Active Substance: DYDROGESTERONE
     Indication: Menstruation irregular
     Dosage: 10 MG, QD
     Route: 048
     Dates: start: 20160407, end: 20160426
  4. CANDESARTAN CILEXETIL [Concomitant]
     Active Substance: CANDESARTAN CILEXETIL
     Indication: Product used for unknown indication
     Dosage: 4 MG, QD
     Route: 048
     Dates: end: 20171127

REACTIONS (2)
  - Hepatic function abnormal [Recovering/Resolving]
  - Menstruation irregular [Unknown]

NARRATIVE: CASE EVENT DATE: 20160426
